FAERS Safety Report 8368496-0 (Version None)
Quarter: 2012Q2

REPORT INFORMATION
  Report Type: 
  Country: None (occurrence: None)
  Receive Date: 20120518
  Receipt Date: 20120503
  Transmission Date: 20120825
  Serious: Yes (Death, Hospitalization)
  Sender: FDA-Public Use
  Company Number: DE-RANBAXY-2012US-56539

PATIENT
  Sex: Male

DRUGS (17)
  1. CITALOPRAM HYDROBROMIDE [Concomitant]
     Indication: PRODUCT USED FOR UNKNOWN INDICATION
     Dosage: UNK
     Route: 048
     Dates: start: 20120502
  2. DULOXETIN [Concomitant]
     Indication: PRODUCT USED FOR UNKNOWN INDICATION
     Dosage: UNK
     Route: 048
     Dates: start: 20120502
  3. PREGABALIN [Concomitant]
     Indication: PRODUCT USED FOR UNKNOWN INDICATION
     Dosage: UNK
     Route: 048
     Dates: start: 20120502
  4. LISINOPRIL [Concomitant]
     Indication: PRODUCT USED FOR UNKNOWN INDICATION
     Dosage: UNK
     Route: 048
     Dates: start: 20120502
  5. MIRTAZAPINE [Concomitant]
     Dosage: UNK
     Route: 048
     Dates: start: 20120508
  6. UBRETID [Suspect]
     Indication: PRODUCT USED FOR UNKNOWN INDICATION
     Dosage: UNK
     Route: 048
     Dates: start: 20120502
  7. PREGABALIN [Concomitant]
     Dosage: UNK
     Route: 048
     Dates: start: 20120508
  8. SILODOSIN [Concomitant]
     Indication: PRODUCT USED FOR UNKNOWN INDICATION
     Dosage: UNK
     Route: 048
     Dates: start: 20120508
  9. PANTOPRAZOLE [Suspect]
     Indication: PRODUCT USED FOR UNKNOWN INDICATION
     Dosage: UNK
     Route: 048
     Dates: start: 20120502
  10. UBRETID [Suspect]
     Dosage: UNK
     Route: 065
     Dates: start: 20120508
  11. DULOXETIN [Concomitant]
     Dosage: UNK
     Route: 048
     Dates: start: 20120508
  12. CITALOPRAM HYDROBROMIDE [Concomitant]
     Dosage: UNK
     Route: 048
     Dates: start: 20120508
  13. LORAZEPAM [Concomitant]
     Indication: PRODUCT USED FOR UNKNOWN INDICATION
     Dosage: UNK
     Route: 048
     Dates: start: 20120502
  14. METAMIZOLE [Concomitant]
     Indication: PRODUCT USED FOR UNKNOWN INDICATION
     Dosage: UNK
     Route: 048
     Dates: start: 20120502
  15. IBUPROFEN [Concomitant]
     Indication: PRODUCT USED FOR UNKNOWN INDICATION
     Dosage: UNK
     Route: 048
     Dates: start: 20120502
  16. TOPIRAMATE [Concomitant]
     Indication: PRODUCT USED FOR UNKNOWN INDICATION
     Dosage: UNK
     Route: 048
     Dates: start: 20120508
  17. MIRTAZAPINE [Concomitant]
     Indication: PRODUCT USED FOR UNKNOWN INDICATION
     Dosage: UNK
     Route: 048
     Dates: start: 20120502

REACTIONS (3)
  - INTENTIONAL OVERDOSE [None]
  - SUICIDE ATTEMPT [None]
  - FATIGUE [None]
